FAERS Safety Report 24877644 (Version 2)
Quarter: 2025Q1

REPORT INFORMATION
  Report Type: Report from Study
  Country: US (occurrence: US)
  Receive Date: 20250123
  Receipt Date: 20250210
  Transmission Date: 20250409
  Serious: Yes (Other)
  Sender: TEVA
  Company Number: US-TEVA-VS-3287333

PATIENT
  Age: 58 Year
  Sex: Female

DRUGS (1)
  1. AUSTEDO [Suspect]
     Active Substance: DEUTETRABENAZINE
     Indication: Tardive dyskinesia
     Route: 048
     Dates: start: 20241226

REACTIONS (9)
  - Hallucination [Recovering/Resolving]
  - Nightmare [Recovering/Resolving]
  - Heart rate irregular [Not Recovered/Not Resolved]
  - Nasal dryness [Recovering/Resolving]
  - Insomnia [Not Recovered/Not Resolved]
  - Dry mouth [Recovering/Resolving]
  - Dry skin [Recovering/Resolving]
  - Constipation [Not Recovered/Not Resolved]
  - Inappropriate schedule of product administration [Unknown]
